FAERS Safety Report 4396269-2 (Version None)
Quarter: 2004Q3

REPORT INFORMATION
  Report Type: 
  Country: None (occurrence: None)
  Receive Date: 20040709
  Receipt Date: 20040706
  Transmission Date: 20050211
  Serious: Yes (Life-Threatening, Other)
  Sender: FDA-Public Use
  Company Number: 805#1#2004-00021

PATIENT
  Sex: Male

DRUGS (2)
  1. ALPROSTADIL [Suspect]
     Indication: HEART DISEASE CONGENITAL
     Route: 041
  2. ALPROSTADIL [Suspect]
     Indication: PATENT DUCTUS ARTERIOSUS
     Route: 041

REACTIONS (1)
  - APNOEIC ATTACK [None]
